FAERS Safety Report 4676764-9 (Version None)
Quarter: 2005Q2

REPORT INFORMATION
  Report Type: 
  Country: None (occurrence: None)
  Receive Date: 20050527
  Receipt Date: 20050511
  Transmission Date: 20051028
  Serious: No
  Sender: FDA-Public Use
  Company Number: RENA-11380

PATIENT
  Age: 56 Year
  Sex: Female
  Weight: 58.0604 kg

DRUGS (1)
  1. RENAGEL [Suspect]
     Indication: HYPERPHOSPHATAEMIA
     Dates: start: 20010401, end: 20010701

REACTIONS (3)
  - FREQUENT BOWEL MOVEMENTS [None]
  - PARATHYROIDECTOMY [None]
  - WEIGHT DECREASED [None]
